FAERS Safety Report 8145213-0 (Version None)
Quarter: 2012Q1

REPORT INFORMATION
  Report Type: 
  Country: None (occurrence: None)
  Receive Date: 20120217
  Receipt Date: 20120210
  Transmission Date: 20120608
  Serious: Yes (Death, Other)
  Sender: FDA-Public Use
  Company Number: US-PURDUE-USA-2012-0082186

PATIENT
  Age: 38 Year
  Sex: Male

DRUGS (1)
  1. OXYCONTIN [Suspect]
     Indication: PRODUCT USED FOR UNKNOWN INDICATION

REACTIONS (7)
  - INTENTIONAL OVERDOSE [None]
  - RENAL FAILURE [None]
  - RESPIRATORY ARREST [None]
  - BLOOD POTASSIUM INCREASED [None]
  - COMA [None]
  - SUBARACHNOID HAEMORRHAGE [None]
  - CARDIAC ARREST [None]
